FAERS Safety Report 8135791-X (Version None)
Quarter: 2012Q1

REPORT INFORMATION
  Report Type: 
  Country: None (occurrence: None)
  Receive Date: 20120214
  Receipt Date: 20120209
  Transmission Date: 20120608
  Serious: Yes (Hospitalization)
  Sender: FDA-Public Use
  Company Number: IT-TEVA-322331ISR

PATIENT
  Sex: Female

DRUGS (6)
  1. DENIBAN [Concomitant]
     Indication: DYSTHYMIC DISORDER
     Route: 048
  2. RANIDIL [Concomitant]
     Indication: PROPHYLAXIS
     Route: 042
     Dates: start: 20120124, end: 20120125
  3. ZOFRAN [Concomitant]
     Indication: PROPHYLAXIS OF NAUSEA AND VOMITING
     Dates: start: 20120124, end: 20120125
  4. ESCITALOPRAM [Concomitant]
     Indication: DEPRESSION
  5. BETAMETHASONE SODIUM PHOSPHATE [Concomitant]
     Indication: ANAPHYLAXIS PROPHYLAXIS
     Dates: start: 20120124, end: 20120125
  6. FLUOROURACIL [Suspect]
     Indication: RECTAL CANCER
     Dosage: 1440 MILLIGRAM;
     Route: 042
     Dates: start: 20120124, end: 20120125

REACTIONS (3)
  - VOMITING [None]
  - NAUSEA [None]
  - ABDOMINAL PAIN [None]
